FAERS Safety Report 5040688-8 (Version None)
Quarter: 2006Q2

REPORT INFORMATION
  Report Type: 
  Country: None (occurrence: None)
  Receive Date: 20060629
  Receipt Date: 20060629
  Transmission Date: 20061013
  Serious: No
  Sender: FDA-Public Use
  Company Number: None

PATIENT
  Sex: Male
  Weight: 77.6105 kg

DRUGS (10)
  1. ADALIMUMAB 40MG/0.8ML [Suspect]
     Indication: RHEUMATOID ARTHRITIS
     Dosage: 40MG Q 2 WEEKS SQ
     Route: 058
     Dates: start: 20060126, end: 20060323
  2. CARBOXYMETHYLCELLULOSE NA [Concomitant]
  3. FELODIPINE [Concomitant]
  4. FOLIC ACID [Concomitant]
  5. GOSERELIN ACETATE [Concomitant]
  6. HCTZ 25/TRIAMTERENE 37.5 [Concomitant]
  7. SYNTHROID [Concomitant]
  8. LORATADINE [Concomitant]
  9. METHOTREXATE NA [Concomitant]
  10. OMEPRAZOLE [Concomitant]

REACTIONS (2)
  - DIZZINESS [None]
  - INJECTION SITE RASH [None]
